FAERS Safety Report 5408932-2 (Version None)
Quarter: 2007Q3

REPORT INFORMATION
  Report Type: 
  Country: None (occurrence: None)
  Receive Date: 20070808
  Receipt Date: 20070727
  Transmission Date: 20080115
  Serious: Yes (Other)
  Sender: FDA-Public Use
  Company Number: US-PFIZER INC-2007063465

PATIENT
  Sex: Female
  Weight: 67.1 kg

DRUGS (2)
  1. CHANTIX [Suspect]
     Indication: SMOKING CESSATION THERAPY
  2. VALTREX [Concomitant]

REACTIONS (10)
  - ABDOMINAL DISTENSION [None]
  - ARTHRALGIA [None]
  - BACK PAIN [None]
  - BODY TEMPERATURE INCREASED [None]
  - FATIGUE [None]
  - FLATULENCE [None]
  - HEADACHE [None]
  - HYPOTENSION [None]
  - NAUSEA [None]
  - WHITE BLOOD CELL COUNT INCREASED [None]
